FAERS Safety Report 8066970-8 (Version None)
Quarter: 2012Q1

REPORT INFORMATION
  Report Type: 
  Country: None (occurrence: None)
  Receive Date: 20120124
  Receipt Date: 20120113
  Transmission Date: 20120608
  Serious: Yes (Hospitalization, Other)
  Sender: FDA-Public Use
  Company Number: US-MERCK-1109USA01504

PATIENT
  Age: 72 Year
  Sex: Female

DRUGS (2)
  1. FOSAMAX [Suspect]
     Indication: OSTEOPENIA
     Route: 048
     Dates: start: 19950101
  2. FOSAMAX [Suspect]
     Indication: OSTEOPOROSIS
     Route: 048
     Dates: start: 19950101

REACTIONS (21)
  - FALL [None]
  - BASAL CELL CARCINOMA [None]
  - ANDROGENETIC ALOPECIA [None]
  - MENISCUS LESION [None]
  - HAEMORRHAGIC ANAEMIA [None]
  - ANAEMIA POSTOPERATIVE [None]
  - FEMUR FRACTURE [None]
  - DRY EYE [None]
  - LOW TURNOVER OSTEOPATHY [None]
  - NAIL DISORDER [None]
  - ARTHRALGIA [None]
  - GASTROOESOPHAGEAL REFLUX DISEASE [None]
  - CAROTID BRUIT [None]
  - HAEMORRHAGE [None]
  - ASTHMA [None]
  - SPINAL COMPRESSION FRACTURE [None]
  - BALANCE DISORDER [None]
  - OSTEOARTHRITIS [None]
  - OSTEONECROSIS [None]
  - HYPERGLYCAEMIA [None]
  - INTERVERTEBRAL DISC PROTRUSION [None]
